FAERS Safety Report 15017798 (Version 2)
Quarter: 2018Q2

REPORT INFORMATION
  Report Type: Other
  Country: US (occurrence: US)
  Receive Date: 20180615
  Receipt Date: 20180615
  Transmission Date: 20180711
  Serious: No
  Sender: FDA-Public Use
  Company Number: US-PRINSTON PHARMACEUTICAL INC.-2018PRN00181

PATIENT
  Age: 52 Year
  Sex: Female
  Weight: 108.84 kg

DRUGS (1)
  1. DULOXETINE. [Suspect]
     Active Substance: DULOXETINE
     Indication: DEPRESSION
     Dosage: 30 MG, 1X/DAY
     Route: 048
     Dates: start: 20180113, end: 20180217

REACTIONS (4)
  - Drug ineffective [Recovered/Resolved]
  - Withdrawal syndrome [Recovering/Resolving]
  - Paraesthesia [Recovered/Resolved]
  - Product substitution issue [Recovered/Resolved]

NARRATIVE: CASE EVENT DATE: 201801
